FAERS Safety Report 6379751-8 (Version None)
Quarter: 2009Q3

REPORT INFORMATION
  Report Type: 
  Country: None (occurrence: None)
  Receive Date: 20090928
  Receipt Date: 20090918
  Transmission Date: 20100115
  Serious: Yes (Other)
  Sender: FDA-Public Use
  Company Number: JP-ABBOTT-09P-087-0596881-00

PATIENT
  Age: 74 Year
  Sex: Male

DRUGS (2)
  1. LEUPLIN FOR INJECTION 3.75 MG [Suspect]
     Indication: PROSTATE CANCER
     Route: 058
     Dates: start: 20090708
  2. ODYNE [Suspect]
     Indication: DRUG USE FOR UNKNOWN INDICATION
     Route: 048

REACTIONS (1)
  - INTERSTITIAL LUNG DISEASE [None]
